FAERS Safety Report 4823574-5 (Version None)
Quarter: 2005Q4

REPORT INFORMATION
  Report Type: 
  Country: None (occurrence: None)
  Receive Date: 20051028
  Receipt Date: 20051020
  Transmission Date: 20060501
  Serious: Yes (Hospitalization, Other)
  Sender: FDA-Public Use
  Company Number: 2005-02144

PATIENT
  Age: 65 Year
  Sex: Male

DRUGS (1)
  1. IMMUCYST [Suspect]
     Indication: CARCINOMA IN SITU OF BLADDER
     Dosage: (81.0 MG), I.VES., BLADDER
     Route: 043
     Dates: start: 20011005, end: 20020227

REACTIONS (4)
  - CONTRACTED BLADDER [None]
  - HYDRONEPHROSIS [None]
  - MYCOBACTERIA URINE TEST POSITIVE [None]
  - TUBERCULOSIS [None]
